FAERS Safety Report 19922805 (Version 3)
Quarter: 2023Q4

REPORT INFORMATION
  Report Type: Spontaneous
  Country: US (occurrence: US)
  Receive Date: 20211005
  Receipt Date: 20231027
  Transmission Date: 20240109
  Serious: No
  Sender: FDA-Public Use
  Company Number: US-AVEO ONCOLOGY-2021-AVEO-US003451

PATIENT

DRUGS (25)
  1. FOTIVDA [Suspect]
     Active Substance: TIVOZANIB HYDROCHLORIDE
     Indication: Renal cell carcinoma
     Dosage: 1.34 MG,DAILY FOR 21 DAYS FOLLOWING 7 DAY OFF
     Route: 048
     Dates: start: 20210908
  2. FOTIVDA [Suspect]
     Active Substance: TIVOZANIB HYDROCHLORIDE
     Dosage: .89 MG,  DAILY FOR 21 DAYS THEN 7 DAYS OFF
     Route: 048
     Dates: start: 20210908
  3. AFRIN [Concomitant]
     Active Substance: OXYMETAZOLINE
  4. CALCIUM [Concomitant]
     Active Substance: CALCIUM
  5. VITAMINS [Concomitant]
     Active Substance: VITAMINS
  6. CLOBETASOL [Concomitant]
     Active Substance: CLOBETASOL
  7. BETAMETHASONE\CLOTRIMAZOLE [Concomitant]
     Active Substance: BETAMETHASONE\CLOTRIMAZOLE
  8. DRONABINOL [Concomitant]
     Active Substance: DRONABINOL
  9. EZETIMIBE [Concomitant]
     Active Substance: EZETIMIBE
  10. HYDROCORTISONE [Concomitant]
     Active Substance: HYDROCORTISONE
  11. IBUPROFEN [Concomitant]
     Active Substance: IBUPROFEN
  12. MUPIROCIN [Concomitant]
     Active Substance: MUPIROCIN
  13. NYSTATIN [Concomitant]
     Active Substance: NYSTATIN
  14. OMEPRAZOLE [Concomitant]
     Active Substance: OMEPRAZOLE
  15. POTASSIUM CHLORIDE [Concomitant]
     Active Substance: POTASSIUM CHLORIDE
  16. ROPINIROLE [Concomitant]
     Active Substance: ROPINIROLE
  17. ROSUVASTATIN [Concomitant]
     Active Substance: ROSUVASTATIN
  18. VENTOLIN [Concomitant]
     Active Substance: ALBUTEROL SULFATE
  19. VITAMIN B COMPLEX [Concomitant]
     Active Substance: CYANOCOBALAMIN\DEXPANTHENOL\NIACINAMIDE\PYRIDOXINE HYDROCHLORIDE\RIBOFLAVIN 5^-PHOSPHATE SODIUM\THIA
  20. LEVOTHYROXINE SODIUM [Concomitant]
     Active Substance: LEVOTHYROXINE SODIUM
  21. RAMIPRIL [Concomitant]
     Active Substance: RAMIPRIL
  22. TRIAMCINOLONE ACETONIDE [Concomitant]
     Active Substance: TRIAMCINOLONE ACETONIDE
  23. FUROSEMIDE [Concomitant]
     Active Substance: FUROSEMIDE
  24. SPIRONOLACTONE [Concomitant]
     Active Substance: SPIRONOLACTONE
  25. BENZONATATE [Concomitant]
     Active Substance: BENZONATATE

REACTIONS (5)
  - Fatigue [Unknown]
  - Dysphonia [Unknown]
  - Abdominal pain [Unknown]
  - Constipation [Unknown]
  - Back pain [Unknown]
